FAERS Safety Report 15090358 (Version 1)
Quarter: 2018Q2

REPORT INFORMATION
  Report Type: Report from Study
  Country: CA (occurrence: CA)
  Receive Date: 20180629
  Receipt Date: 20180629
  Transmission Date: 20180711
  Serious: Yes (Other)
  Sender: FDA-Public Use
  Company Number: CA-GLAXOSMITHKLINE-CA2018GSK099328

PATIENT
  Sex: Female

DRUGS (3)
  1. MEPOLIZUMAB [Suspect]
     Active Substance: MEPOLIZUMAB
     Dosage: 100 MG, Z(MONTHLY)
     Route: 042
  2. MEPOLIZUMAB [Suspect]
     Active Substance: MEPOLIZUMAB
     Indication: ASTHMA
     Dosage: 100 MG, Z(MONTHLY)
     Route: 042
     Dates: start: 20180206
  3. VENTOLIN [Suspect]
     Active Substance: ALBUTEROL SULFATE
     Indication: PRODUCT USED FOR UNKNOWN INDICATION
     Dosage: UNK

REACTIONS (11)
  - Lung disorder [Recovering/Resolving]
  - Abdominal pain upper [Recovered/Resolved]
  - Cough [Unknown]
  - Sleep disorder [Unknown]
  - Dyspnoea [Unknown]
  - Pain in extremity [Recovering/Resolving]
  - Cataract [Unknown]
  - Wheezing [Unknown]
  - Muscle spasms [Recovering/Resolving]
  - Loss of personal independence in daily activities [Unknown]
  - Asthma [Unknown]
